FAERS Safety Report 15281948 (Version 1)
Quarter: 2018Q3

REPORT INFORMATION
  Report Type: Spontaneous
  Country: GB (occurrence: GB)
  Receive Date: 20180815
  Receipt Date: 20180815
  Transmission Date: 20181010
  Serious: Yes (Other)
  Sender: FDA-Public Use
  Company Number: GB-009507513-2008-189104-NL

PATIENT
  Sex: Female
  Weight: 63.5 kg

DRUGS (2)
  1. VENLAFAXINE HYDROCHLORIDE. [Concomitant]
     Active Substance: VENLAFAXINE HYDROCHLORIDE
     Dosage: DOSE TEXT: 225 M
  2. IMPLANON [Suspect]
     Active Substance: ETONOGESTREL
     Dosage: CONTINUING: NO
     Route: 059
     Dates: start: 200601, end: 20081111

REACTIONS (3)
  - Pregnancy with implant contraceptive [Unknown]
  - Anembryonic gestation [Unknown]
  - Abortion spontaneous complete [Unknown]

NARRATIVE: CASE EVENT DATE: 20081111
